FAERS Safety Report 18174490 (Version 1)
Quarter: 2020Q3

REPORT INFORMATION
  Report Type: Spontaneous
  Country: US (occurrence: US)
  Receive Date: 20200820
  Receipt Date: 20200820
  Transmission Date: 20201103
  Serious: Yes (Hospitalization)
  Sender: FDA-Public Use
  Company Number: None

PATIENT
  Age: 50 Year
  Sex: Female
  Weight: 101.6 kg

DRUGS (1)
  1. ASPIRIN (27223) [Suspect]
     Active Substance: ASPIRIN
     Dates: end: 197008

REACTIONS (7)
  - Brain oedema [None]
  - Brain abscess [None]
  - Metastases to central nervous system [None]
  - Facial paralysis [None]
  - Speech disorder [None]
  - Muscular weakness [None]
  - Postoperative abscess [None]

NARRATIVE: CASE EVENT DATE: 20200814
